FAERS Safety Report 6420539-7 (Version None)
Quarter: 2009Q4

REPORT INFORMATION
  Report Type: 
  Country: None (occurrence: None)
  Receive Date: 20091029
  Receipt Date: 20091020
  Transmission Date: 20100525
  Serious: Yes (Hospitalization)
  Sender: FDA-Public Use
  Company Number: US-ABBOTT-09P-163-0594596-00

PATIENT
  Sex: Male
  Weight: 102.15 kg

DRUGS (23)
  1. DEPAKOTE ER [Suspect]
     Indication: DRUG USE FOR UNKNOWN INDICATION
     Dates: start: 19950101
  2. DEPAKOTE ER [Suspect]
     Dates: start: 20070101
  3. DEPAKOTE ER [Suspect]
  4. CYLERT [Suspect]
     Indication: ATTENTION DEFICIT/HYPERACTIVITY DISORDER
     Route: 048
     Dates: start: 19930101, end: 19950101
  5. PROZAC [Concomitant]
     Indication: DRUG USE FOR UNKNOWN INDICATION
  6. ZOLOFT [Concomitant]
     Indication: DRUG USE FOR UNKNOWN INDICATION
  7. ZOLOFT [Concomitant]
  8. ZOLOFT [Concomitant]
  9. ZOLOFT [Concomitant]
     Dates: start: 20080801, end: 20081101
  10. CYLERT [Concomitant]
     Indication: DRUG USE FOR UNKNOWN INDICATION
  11. WELLBUTRIN [Concomitant]
     Indication: DRUG USE FOR UNKNOWN INDICATION
  12. WELLBUTRIN [Concomitant]
  13. RITALIN [Concomitant]
     Indication: DRUG USE FOR UNKNOWN INDICATION
  14. METHYL D [Concomitant]
     Indication: DRUG USE FOR UNKNOWN INDICATION
  15. METHYL D [Concomitant]
  16. VENTOLIN [Concomitant]
     Indication: ASTHMA
     Route: 055
  17. CHANTIX [Concomitant]
     Indication: DRUG USE FOR UNKNOWN INDICATION
  18. LORAZEPAM [Concomitant]
     Indication: DRUG USE FOR UNKNOWN INDICATION
  19. GEODON [Concomitant]
     Indication: DRUG USE FOR UNKNOWN INDICATION
  20. SEROQUEL [Concomitant]
     Indication: DRUG USE FOR UNKNOWN INDICATION
  21. SEROQUEL [Concomitant]
  22. SEROQUEL [Concomitant]
  23. LAMICTAL [Concomitant]
     Indication: DRUG USE FOR UNKNOWN INDICATION
     Dosage: ORANGE STARTER KIT - SAMPLES

REACTIONS (37)
  - ABDOMINAL PAIN UPPER [None]
  - ABNORMAL BEHAVIOUR [None]
  - ACTIVITIES OF DAILY LIVING IMPAIRED [None]
  - AGGRESSION [None]
  - AGITATION [None]
  - ANGER [None]
  - ANHEDONIA [None]
  - BIPOLAR DISORDER [None]
  - BRAIN INJURY [None]
  - CHEST PAIN [None]
  - DEPRESSION [None]
  - DISTURBANCE IN SOCIAL BEHAVIOUR [None]
  - DRUG ADMINISTRATION ERROR [None]
  - EMOTIONAL DISORDER [None]
  - EUPHORIC MOOD [None]
  - FEAR [None]
  - FEELING ABNORMAL [None]
  - FRUSTRATION [None]
  - HEADACHE [None]
  - HOMELESS [None]
  - HOSPITALISATION [None]
  - ILL-DEFINED DISORDER [None]
  - INCORRECT DRUG ADMINISTRATION DURATION [None]
  - IRRITABILITY [None]
  - LOGORRHOEA [None]
  - LOSS OF EMPLOYMENT [None]
  - MALAISE [None]
  - NIGHTMARE [None]
  - OBSESSIVE-COMPULSIVE DISORDER [None]
  - OVERDOSE [None]
  - PANIC ATTACK [None]
  - PARANOIA [None]
  - PSYCHOTIC DISORDER [None]
  - RASH [None]
  - SCHIZOAFFECTIVE DISORDER [None]
  - SUICIDE ATTEMPT [None]
  - UNEVALUABLE EVENT [None]
